FAERS Safety Report 24997329 (Version 1)
Quarter: 2025Q1

REPORT INFORMATION
  Report Type: Report from Study
  Country: JP (occurrence: JP)
  Receive Date: 20250222
  Receipt Date: 20250222
  Transmission Date: 20250409
  Serious: Yes (Other)
  Sender: ALEXION PHARMACEUTICALS
  Company Number: JP-ASTRAZENECA-250013989_064320_P_1

PATIENT
  Age: 59 Year
  Weight: 51 kg

DRUGS (13)
  1. ANDEXANET ALFA [Suspect]
     Active Substance: ANDEXANET ALFA
     Indication: Thrombosis
  2. RIVAROXABAN [Concomitant]
     Active Substance: RIVAROXABAN
     Route: 065
  3. HEPARIN CALCIUM [Concomitant]
     Active Substance: HEPARIN CALCIUM
  4. ROCURONIUM BROMIDE [Concomitant]
     Active Substance: ROCURONIUM BROMIDE
     Indication: Hypotonia
     Route: 065
  5. OMEPRAZOLE [Concomitant]
     Active Substance: OMEPRAZOLE
     Indication: Prophylaxis
     Route: 065
  6. MENATETRENONE [Concomitant]
     Active Substance: MENATETRENONE
     Indication: Cerebral haemorrhage
     Route: 065
  7. SOLU-CORTEF [Concomitant]
     Active Substance: HYDROCORTISONE SODIUM SUCCINATE
     Indication: Blood corticotrophin abnormal
     Route: 065
  8. NOREPINEPHRINE BITARTRATE [Concomitant]
     Active Substance: NOREPINEPHRINE BITARTRATE
     Indication: Blood pressure decreased
     Route: 065
  9. MIDAZOLAM [Concomitant]
     Active Substance: MIDAZOLAM
     Indication: Sedation
     Route: 065
  10. MEYLON [Concomitant]
     Active Substance: SODIUM BICARBONATE
     Indication: Acidosis
  11. FENTANYL [Concomitant]
     Active Substance: FENTANYL
     Indication: Analgesic therapy
     Route: 065
  12. KETALAR [Concomitant]
     Active Substance: KETAMINE HYDROCHLORIDE
     Indication: Sedation
     Route: 065
  13. CYANOCOBALAMIN\PYRIDOXINE HYDROCHLORIDE\THIAMINE [Concomitant]
     Active Substance: CYANOCOBALAMIN\PYRIDOXINE HYDROCHLORIDE\THIAMINE
     Indication: Hypovitaminosis

REACTIONS (1)
  - Splenic infarction [Recovered/Resolved with Sequelae]
